FAERS Safety Report 9659832 (Version 4)
Quarter: 2014Q1

REPORT INFORMATION
  Report Type: Spontaneous
  Country: JP (occurrence: JP)
  Receive Date: 20131031
  Receipt Date: 20140319
  Transmission Date: 20141002
  Serious: Yes (Hospitalization, Other)
  Sender: FDA-Public Use
  Company Number: JP-ASTELLAS-2013US011392

PATIENT
  Age: 57 Year
  Sex: Male

DRUGS (13)
  1. TARCEVA [Suspect]
     Indication: LUNG ADENOCARCINOMA
     Dosage: 150 MG, UID/QD
     Route: 048
     Dates: start: 20130806, end: 20130920
  2. VOLTAREN-XR [Suspect]
     Indication: LUNG ADENOCARCINOMA
     Dosage: 37.5 MG, BID
     Route: 048
     Dates: start: 201302, end: 20130921
  3. DECADRON /00016001/ [Suspect]
     Indication: LUNG ADENOCARCINOMA
     Dosage: 1 MG, BID
     Route: 048
     Dates: start: 201302, end: 20130921
  4. NEXIUM                             /01479302/ [Concomitant]
     Indication: PROPHYLAXIS
     Dosage: 20 MG, UID/QD
     Route: 048
     Dates: start: 20130921
  5. MAGLAX [Concomitant]
     Indication: PROPHYLAXIS
     Dosage: 250 MG, TID
     Route: 048
     Dates: start: 20130921
  6. SENNOSIDE A [Concomitant]
     Indication: PROPHYLAXIS
     Dosage: PRN
     Route: 048
     Dates: end: 20130921
  7. OXYCONTIN [Concomitant]
     Indication: PRODUCT USED FOR UNKNOWN INDICATION
     Dosage: UNK
     Route: 048
  8. HIRUDOID                           /00723701/ [Concomitant]
     Indication: PRODUCT USED FOR UNKNOWN INDICATION
     Dosage: UNK
     Route: 003
  9. POLARAMINE [Concomitant]
     Indication: PRODUCT USED FOR UNKNOWN INDICATION
     Dosage: UNK
     Route: 048
  10. LASIX                              /00032601/ [Concomitant]
     Indication: PRODUCT USED FOR UNKNOWN INDICATION
     Dosage: UNK
     Route: 048
  11. BIO-THREE [Concomitant]
     Indication: PRODUCT USED FOR UNKNOWN INDICATION
     Dosage: UNK
     Route: 048
  12. LOPENA [Concomitant]
     Indication: PRODUCT USED FOR UNKNOWN INDICATION
     Dosage: UNK
     Route: 048
  13. RINDERON-VG [Concomitant]
     Indication: PRODUCT USED FOR UNKNOWN INDICATION
     Dosage: UNK
     Route: 003

REACTIONS (6)
  - C-reactive protein increased [Unknown]
  - Diverticular perforation [Recovering/Resolving]
  - Respiratory disorder [Unknown]
  - Depressed level of consciousness [Unknown]
  - Peritonitis [Recovering/Resolving]
  - Pneumonia [Unknown]
